FAERS Safety Report 15823395 (Version 2)
Quarter: 2019Q1

REPORT INFORMATION
  Report Type: Spontaneous
  Country: US (occurrence: US)
  Receive Date: 20190114
  Receipt Date: 20190207
  Transmission Date: 20190417
  Serious: Yes (Other)
  Sender: FDA-Public Use
  Company Number: US-REGENERON PHARMACEUTICALS, INC.-2019-10565

PATIENT

DRUGS (6)
  1. EYLEA [Suspect]
     Active Substance: AFLIBERCEPT
     Dosage: INJECTED INTO RIGHT EYE
     Route: 031
     Dates: start: 20181128, end: 20181128
  2. EYLEA [Suspect]
     Active Substance: AFLIBERCEPT
     Dosage: INTO THE LEFT EYE
     Route: 031
     Dates: start: 20181217, end: 20181217
  3. EYLEA [Suspect]
     Active Substance: AFLIBERCEPT
     Dosage: INJECTED INTO BOTH EYES
     Route: 031
     Dates: start: 20180925, end: 20180925
  4. EYLEA [Suspect]
     Active Substance: AFLIBERCEPT
     Indication: CHOROIDAL NEOVASCULARISATION
     Dosage: INTO THE LEFT EYE, EVERY 6-8 WEEKS
     Route: 031
     Dates: start: 201807
  5. EYLEA [Suspect]
     Active Substance: AFLIBERCEPT
     Dosage: INJECTED INTO LEFT EYE
     Route: 031
     Dates: start: 20181105, end: 20181105
  6. EYLEA [Suspect]
     Active Substance: AFLIBERCEPT
     Indication: NEOVASCULAR AGE-RELATED MACULAR DEGENERATION
     Dosage: INTO THE RIGHT EYE, EVERY 6-8 WEEKS
     Route: 031
     Dates: start: 20180611

REACTIONS (22)
  - Eye pain [Unknown]
  - Nausea [Unknown]
  - Upper-airway cough syndrome [Unknown]
  - Productive cough [Unknown]
  - Chills [Unknown]
  - Nervousness [Unknown]
  - Gait disturbance [Unknown]
  - Metamorphopsia [Unknown]
  - Weight decreased [Unknown]
  - Sinus congestion [Unknown]
  - Fatigue [Unknown]
  - Arthralgia [Not Recovered/Not Resolved]
  - Panic attack [Not Recovered/Not Resolved]
  - Decreased appetite [Unknown]
  - Anxiety [Unknown]
  - Temporal arteritis [Unknown]
  - Eye haemorrhage [Not Recovered/Not Resolved]
  - Dysgeusia [Unknown]
  - Pulmonary congestion [Unknown]
  - Dizziness [Unknown]
  - Sinus headache [Unknown]
  - Pollakiuria [Unknown]

NARRATIVE: CASE EVENT DATE: 201806
